FAERS Safety Report 25405600 (Version 1)
Quarter: 2025Q2

REPORT INFORMATION
  Report Type: Spontaneous
  Country: US (occurrence: US)
  Receive Date: 20250606
  Receipt Date: 20250606
  Transmission Date: 20250717
  Serious: No
  Sender: MYLAN
  Company Number: US-MYLANLABS-2025M1046606

PATIENT
  Age: 22 Year
  Sex: Male

DRUGS (4)
  1. BREYNA [Suspect]
     Active Substance: BUDESONIDE\FORMOTEROL FUMARATE
     Indication: Product used for unknown indication
     Dosage: 160/4.5 MICROGRAM, BID (TWICE A DAY)
     Dates: start: 202505
  2. BREYNA [Suspect]
     Active Substance: BUDESONIDE\FORMOTEROL FUMARATE
     Dosage: 160/4.5 MICROGRAM, BID (TWICE A DAY)
     Route: 055
     Dates: start: 202505
  3. BREYNA [Suspect]
     Active Substance: BUDESONIDE\FORMOTEROL FUMARATE
     Dosage: 160/4.5 MICROGRAM, BID (TWICE A DAY)
     Route: 055
     Dates: start: 202505
  4. BREYNA [Suspect]
     Active Substance: BUDESONIDE\FORMOTEROL FUMARATE
     Dosage: 160/4.5 MICROGRAM, BID (TWICE A DAY)
     Dates: start: 202505

REACTIONS (5)
  - Wrong technique in product usage process [Unknown]
  - Product substitution issue [Unknown]
  - Device delivery system issue [Unknown]
  - Device mechanical issue [Unknown]
  - Product label issue [Unknown]

NARRATIVE: CASE EVENT DATE: 20250501
